FAERS Safety Report 17433567 (Version 2)
Quarter: 2020Q2

REPORT INFORMATION
  Report Type: Spontaneous
  Country: SE (occurrence: SE)
  Receive Date: 20200219
  Receipt Date: 20200412
  Transmission Date: 20200713
  Serious: Yes (Other)
  Sender: FDA-Public Use
  Company Number: SE-ROCHE-2551853

PATIENT
  Age: 72 Year
  Sex: Male

DRUGS (10)
  1. DOXORUBICINE [DOXORUBICIN] [Concomitant]
     Active Substance: DOXORUBICIN
  2. TRAMETINIB [Concomitant]
     Active Substance: TRAMETINIB
     Route: 065
  3. RITUXIMAB. [Suspect]
     Active Substance: RITUXIMAB
     Indication: CHRONIC LYMPHOCYTIC LEUKAEMIA
     Dosage: UNK (4 COURSES)
     Route: 065
  4. PREDNISONE. [Concomitant]
     Active Substance: PREDNISONE
  5. BENDAMUSTINE [Suspect]
     Active Substance: BENDAMUSTINE
     Indication: CHRONIC LYMPHOCYTIC LEUKAEMIA
     Dosage: UNK (4 COURSES)
     Route: 065
  6. BENDAMUSTINE [Suspect]
     Active Substance: BENDAMUSTINE
     Indication: DIFFUSE LARGE B-CELL LYMPHOMA
  7. VINCRISTINE [Concomitant]
     Active Substance: VINCRISTINE
  8. DABRAFENIB [Concomitant]
     Active Substance: DABRAFENIB
     Route: 065
  9. RITUXIMAB. [Suspect]
     Active Substance: RITUXIMAB
     Indication: DIFFUSE LARGE B-CELL LYMPHOMA
     Route: 065
     Dates: start: 2017
  10. CYCLOPHOSPHAMIDE. [Concomitant]
     Active Substance: CYCLOPHOSPHAMIDE

REACTIONS (4)
  - Chronic lymphocytic leukaemia [Unknown]
  - Diffuse large B-cell lymphoma [Unknown]
  - Neoplasm progression [Unknown]
  - Richter^s syndrome [Unknown]

NARRATIVE: CASE EVENT DATE: 2017
